FAERS Safety Report 25739701 (Version 1)
Quarter: 2025Q3

REPORT INFORMATION
  Report Type: Spontaneous
  Country: US (occurrence: None)
  Receive Date: 20250828
  Receipt Date: 20250828
  Transmission Date: 20251021
  Serious: Yes (Death)
  Sender: FDA-CTU
  Company Number: None

PATIENT
  Age: 77 Year
  Sex: Male
  Weight: 95.25 kg

DRUGS (4)
  1. MAVYRET [Suspect]
     Active Substance: GLECAPREVIR\PIBRENTASVIR
     Dates: start: 20241226, end: 20250220
  2. AMLODIPINE [Suspect]
     Active Substance: AMLODIPINE BESYLATE
  3. HYDROCHLOROTHIAZIDE\TELMISARTAN [Suspect]
     Active Substance: HYDROCHLOROTHIAZIDE\TELMISARTAN
  4. SPIRONOLACTONE [Suspect]
     Active Substance: SPIRONOLACTONE

REACTIONS (1)
  - Death [None]
